FAERS Safety Report 12171373 (Version 1)
Quarter: 2016Q1

REPORT INFORMATION
  Report Type: Spontaneous
  Country: IN (occurrence: IN)
  Receive Date: 20160311
  Receipt Date: 20160311
  Transmission Date: 20160526
  Serious: Yes (Other)
  Sender: FDA-Public Use
  Company Number: IN-LUPIN PHARMACEUTICALS INC.-E2B_00005007

PATIENT
  Age: 50 Year
  Sex: Male

DRUGS (5)
  1. DEPLATT A 150 [Concomitant]
     Indication: PARALYSIS
     Route: 048
  2. ATORVASTATIN [Concomitant]
     Active Substance: ATORVASTATIN
     Indication: BLOOD CHOLESTEROL INCREASED
     Route: 048
  3. TELISTA AM [Suspect]
     Active Substance: AMLODIPINE\TELMISARTAN
     Route: 048
     Dates: start: 201602, end: 20160222
  4. TELISTA AM [Suspect]
     Active Substance: AMLODIPINE\TELMISARTAN
     Indication: HYPERTENSION
     Route: 048
     Dates: end: 201602
  5. GEMER 2 [Concomitant]
     Indication: DIABETES MELLITUS
     Route: 048

REACTIONS (5)
  - Drug ineffective [Unknown]
  - Facial paralysis [Unknown]
  - Blood pressure increased [Recovered/Resolved]
  - Dizziness [Unknown]
  - Monoplegia [Unknown]

NARRATIVE: CASE EVENT DATE: 20160222
